FAERS Safety Report 9032210 (Version 1)
Quarter: 2013Q1

REPORT INFORMATION
  Report Type: Spontaneous
  Country: DE (occurrence: DE)
  Receive Date: 20130122
  Receipt Date: 20130122
  Transmission Date: 20140127
  Serious: Yes (Hospitalization)
  Sender: FDA-Public Use
  Company Number: DE-009507513-1301DEU009357

PATIENT
  Age: 30 Year
  Sex: Female

DRUGS (1)
  1. ZOELY [Suspect]
     Indication: CONTRACEPTION
     Dosage: UNK
     Route: 048
     Dates: start: 2012

REACTIONS (1)
  - Meniere^s disease [Recovering/Resolving]
